FAERS Safety Report 11927010 (Version 1)
Quarter: 2016Q1

REPORT INFORMATION
  Report Type: Spontaneous
  Country: US (occurrence: US)
  Receive Date: 20160119
  Receipt Date: 20160119
  Transmission Date: 20160526
  Serious: Yes (Life-Threatening, Other)
  Sender: FDA-Public Use
  Company Number: US-ELI_LILLY_AND_COMPANY-US201601005260

PATIENT

DRUGS (4)
  1. CYMBALTA [Suspect]
     Active Substance: DULOXETINE HYDROCHLORIDE
     Indication: DEPRESSION
  2. VIAGRA [Suspect]
     Active Substance: SILDENAFIL CITRATE
     Indication: ERECTILE DYSFUNCTION
     Route: 065
  3. CYMBALTA [Suspect]
     Active Substance: DULOXETINE HYDROCHLORIDE
     Indication: NEURALGIA
     Dosage: 30 MG, TID
     Route: 048
     Dates: start: 2010
  4. CYMBALTA [Suspect]
     Active Substance: DULOXETINE HYDROCHLORIDE
     Indication: ANXIETY
     Dosage: 60 MG, BID
     Route: 048

REACTIONS (15)
  - Unresponsive to stimuli [Recovered/Resolved]
  - Drug ineffective [Unknown]
  - Blood pressure decreased [Recovered/Resolved]
  - Hallucination, visual [Recovered/Resolved]
  - Bipolar disorder [Recovering/Resolving]
  - Post-traumatic stress disorder [Recovering/Resolving]
  - Pulse absent [Recovered/Resolved]
  - Aggression [Recovered/Resolved]
  - Feeling abnormal [Recovered/Resolved]
  - Seizure [Recovered/Resolved]
  - Drug withdrawal syndrome [Recovered/Resolved]
  - Respiratory arrest [Recovered/Resolved]
  - Blood pressure immeasurable [Recovered/Resolved]
  - Insomnia [Recovering/Resolving]
  - Hallucination, auditory [Recovered/Resolved]

NARRATIVE: CASE EVENT DATE: 2013
